FAERS Safety Report 6280588-9 (Version None)
Quarter: 2009Q3

REPORT INFORMATION
  Report Type: 
  Country: None (occurrence: None)
  Receive Date: 20090724
  Receipt Date: 20090409
  Transmission Date: 20100115
  Serious: Yes (Hospitalization)
  Sender: FDA-Public Use
  Company Number: A0748269A

PATIENT
  Age: 55 Year
  Sex: Female
  Weight: 62.7 kg

DRUGS (5)
  1. AVANDIA [Suspect]
     Indication: DIABETES MELLITUS
     Dosage: 4MG PER DAY
     Route: 048
     Dates: start: 20030101, end: 20070501
  2. METFORMIN HCL [Concomitant]
  3. PREVACID [Concomitant]
  4. GEMFIBROZIL [Concomitant]
  5. ETODOLAC [Concomitant]

REACTIONS (2)
  - FOOT FRACTURE [None]
  - LOWER LIMB FRACTURE [None]
